FAERS Safety Report 9014075 (Version 5)
Quarter: 2013Q2

REPORT INFORMATION
  Report Type: Report from Study
  Country: RS (occurrence: RS)
  Receive Date: 20130115
  Receipt Date: 20130506
  Transmission Date: 20140414
  Serious: Yes (Death, Life-Threatening, Hospitalization, Disabling)
  Sender: FDA-Public Use
  Company Number: RS-ROCHE-1177982

PATIENT
  Age: 63 Year
  Sex: Female
  Weight: 80 kg

DRUGS (6)
  1. BEVACIZUMAB [Suspect]
     Indication: RENAL CELL CARCINOMA
     Dosage: LAST DOSE BEFORE SAE TAKEN ON: 27.12.2012
     Route: 042
     Dates: start: 20091216, end: 20130103
  2. INTERFERON ALFA-2A [Suspect]
     Indication: RENAL CELL CARCINOMA
     Dosage: 9MU, LAST DOSE BEFORE SAE TAKEN ON: 01/JAN/2013
     Route: 058
     Dates: start: 20091216, end: 20130103
  3. ENALAPRIL [Concomitant]
     Route: 065
     Dates: start: 20100114, end: 20130103
  4. ATORVASTATIN CALCIUM [Concomitant]
     Route: 048
     Dates: start: 20101202, end: 20130103
  5. AMLODIPINE BESILATE [Concomitant]
     Route: 048
     Dates: start: 20100114, end: 20130103
  6. LETROX [Concomitant]
     Indication: THYROIDITIS
     Route: 048
     Dates: start: 20090801, end: 20130103

REACTIONS (1)
  - Cerebral ischaemia [Fatal]
